FAERS Safety Report 14251003 (Version 1)
Quarter: 2017Q4

REPORT INFORMATION
  Report Type: Spontaneous
  Country: US (occurrence: US)
  Receive Date: 20171205
  Receipt Date: 20171205
  Transmission Date: 20180321
  Serious: No
  Sender: FDA-Public Use
  Company Number: None

PATIENT
  Age: 48 Year
  Sex: Male
  Weight: 90 kg

DRUGS (1)
  1. METALLIC SILVER FROM HAMMER [Suspect]
     Active Substance: SILVER

REACTIONS (3)
  - Removal of foreign body [None]
  - Pain in extremity [None]
  - Prompt effects of radiation [None]

NARRATIVE: CASE EVENT DATE: 20171205
